FAERS Safety Report 8255578-7 (Version None)
Quarter: 2012Q2

REPORT INFORMATION
  Report Type: 
  Country: None (occurrence: None)
  Receive Date: 20120403
  Receipt Date: 20120326
  Transmission Date: 20120825
  Serious: Yes (Hospitalization)
  Sender: FDA-Public Use
  Company Number: JP-SANOFI-AVENTIS-2012SA021877

PATIENT

DRUGS (2)
  1. PLAVIX [Suspect]
     Indication: PERCUTANEOUS CORONARY INTERVENTION
     Route: 048
     Dates: start: 20120201, end: 20120201
  2. ASPIRIN [Concomitant]
     Dosage: BEFORE FEB-2012
     Route: 048

REACTIONS (1)
  - LIVER DISORDER [None]
